FAERS Safety Report 5977446-3 (Version None)
Quarter: 2008Q4

REPORT INFORMATION
  Report Type: 
  Country: None (occurrence: None)
  Receive Date: 20081203
  Receipt Date: 20081126
  Transmission Date: 20090506
  Serious: Yes (Hospitalization)
  Sender: FDA-Public Use
  Company Number: A0758991A

PATIENT
  Age: 54 Year
  Sex: Female
  Weight: 95.5 kg

DRUGS (3)
  1. AVANDIA [Suspect]
     Dosage: 4MG PER DAY
     Route: 065
     Dates: start: 19970101, end: 20080701
  2. AVANDAMET [Suspect]
     Dosage: 2MG PER DAY
     Route: 065
     Dates: start: 19970101, end: 20080701
  3. METFORMIN HCL [Concomitant]

REACTIONS (4)
  - ACUTE CORONARY SYNDROME [None]
  - CORONARY ARTERY DISEASE [None]
  - ISCHAEMIA [None]
  - MYOCARDIAL INFARCTION [None]
